FAERS Safety Report 9900093 (Version 2)
Quarter: 2014Q3

REPORT INFORMATION
  Report Type: Spontaneous
  Country: US (occurrence: US)
  Receive Date: 20140214
  Receipt Date: 20140821
  Transmission Date: 20150326
  Serious: Yes (Death, Hospitalization, Other)
  Sender: FDA-Public Use
  Company Number: US-009507513-1402USA007197

PATIENT
  Sex: Female
  Weight: 134.69 kg

DRUGS (1)
  1. NUVARING [Suspect]
     Active Substance: ETHINYL ESTRADIOL\ETONOGESTREL
     Indication: MIGRAINE
     Dosage: UNK
     Route: 067
     Dates: start: 20070430, end: 20070909

REACTIONS (6)
  - Peripheral swelling [Unknown]
  - Myocardial infarction [Unknown]
  - Off label use [Unknown]
  - Pulmonary embolism [Fatal]
  - Pneumonia [Unknown]
  - Supraventricular tachycardia [Unknown]

NARRATIVE: CASE EVENT DATE: 20070430
